FAERS Safety Report 8324748-1 (Version None)
Quarter: 2012Q2

REPORT INFORMATION
  Report Type: 
  Country: None (occurrence: None)
  Receive Date: 20120501
  Receipt Date: 20120424
  Transmission Date: 20120825
  Serious: Yes (Death, Hospitalization)
  Sender: FDA-Public Use
  Company Number: IT-CELGENEUS-083-22393-12010916

PATIENT
  Sex: Female

DRUGS (3)
  1. ISTODAX [Suspect]
     Indication: PERIPHERAL T-CELL LYMPHOMA UNSPECIFIED
     Route: 041
     Dates: start: 20111130, end: 20111214
  2. ISTODAX [Suspect]
     Route: 041
     Dates: start: 20120109
  3. CORTICOSTEROIDS [Concomitant]
     Route: 065
     Dates: start: 20111101, end: 20111201

REACTIONS (13)
  - PERIPHERAL T-CELL LYMPHOMA UNSPECIFIED [None]
  - PYREXIA [None]
  - BLOOD LACTATE DEHYDROGENASE INCREASED [None]
  - DEATH [None]
  - CONGESTIVE CARDIOMYOPATHY [None]
  - DECREASED APPETITE [None]
  - ASTHENIA [None]
  - DRUG INTOLERANCE [None]
  - WEIGHT DECREASED [None]
  - NIGHT SWEATS [None]
  - PRODUCT CONTAMINATION MICROBIAL [None]
  - GENERAL PHYSICAL HEALTH DETERIORATION [None]
  - ANAEMIA [None]
